FAERS Safety Report 9157741 (Version 2)
Quarter: 2013Q2

REPORT INFORMATION
  Report Type: Spontaneous
  Country: US (occurrence: US)
  Receive Date: 20130312
  Receipt Date: 20130408
  Transmission Date: 20140414
  Serious: No
  Sender: FDA-Public Use
  Company Number: US-009507513-1303USA004359

PATIENT
  Sex: Female
  Weight: 81.63 kg

DRUGS (2)
  1. JANUVIA [Suspect]
     Indication: BLOOD GLUCOSE
     Dosage: 20 MG, QD
     Route: 048
     Dates: start: 201203
  2. ENALAPRIL MALEATE [Concomitant]
     Dosage: UNK
     Route: 048

REACTIONS (3)
  - Syncope [Unknown]
  - Tremor [Unknown]
  - Blood glucose decreased [Unknown]
